FAERS Safety Report 9377196 (Version 2)
Quarter: 2013Q3

REPORT INFORMATION
  Report Type: Spontaneous
  Country: US (occurrence: US)
  Receive Date: 20130701
  Receipt Date: 20130823
  Transmission Date: 20140515
  Serious: Yes (Hospitalization, Other)
  Sender: FDA-Public Use
  Company Number: US-BAYER-2013-079759

PATIENT
  Age: 68 Year
  Sex: Male
  Weight: 95.71 kg

DRUGS (20)
  1. XARELTO [Suspect]
     Indication: THROMBOSIS PROPHYLAXIS
     Dosage: 10 MG, UNK
     Route: 048
     Dates: start: 20130604, end: 201306
  2. XARELTO [Suspect]
     Indication: THROMBOSIS PROPHYLAXIS
  3. XARELTO [Suspect]
     Indication: THROMBOSIS PROPHYLAXIS
  4. ACETYLSALICYLIC ACID({=100 MG) [Suspect]
     Indication: PRODUCT USED FOR UNKNOWN INDICATION
     Route: 065
  5. ACTOS [Concomitant]
     Route: 065
  6. ACTOS [Concomitant]
  7. LANTUS [Concomitant]
     Route: 065
  8. LANTUS [Concomitant]
     Dosage: 34 IU, QD
  9. JANUVIA [Concomitant]
     Route: 065
  10. JANUVIA [Concomitant]
     Dosage: 100 MG, QD
     Route: 048
  11. SIMVASTATIN [Concomitant]
     Route: 065
  12. SIMVASTATIN [Concomitant]
     Dosage: 40 MG, QD
     Route: 048
  13. LISINOPRIL [Concomitant]
     Route: 065
  14. LISINOPRIL [Concomitant]
     Dosage: 20 MG, QD
     Route: 048
  15. METFORMIN [Concomitant]
     Route: 065
  16. NORCO [Concomitant]
     Route: 065
  17. NORCO [Concomitant]
  18. METFORMIN HYDROCHLORIDE [Concomitant]
     Dosage: 500 MG, QID
     Route: 048
  19. GLUCOSAMINE [Concomitant]
     Dosage: 2 DF, QD
     Route: 048
  20. FINASTERIDE [Concomitant]
     Dosage: 5 MG, UNK
     Route: 048

REACTIONS (9)
  - Haematuria [Recovered/Resolved]
  - Gingival bleeding [Recovered/Resolved]
  - Wound haemorrhage [Recovered/Resolved]
  - Contusion [Recovered/Resolved]
  - Joint injury [Recovered/Resolved]
  - Arthritis infective [Recovered/Resolved]
  - Ecchymosis [Recovered/Resolved]
  - Arthralgia [Recovered/Resolved]
  - Joint swelling [Recovered/Resolved]
